FAERS Safety Report 20469967 (Version 6)
Quarter: 2023Q4

REPORT INFORMATION
  Report Type: Report from Study
  Country: FR (occurrence: FR)
  Receive Date: 20220214
  Receipt Date: 20231205
  Transmission Date: 20240110
  Serious: Yes (Hospitalization)
  Sender: FDA-Public Use
  Company Number: FR-SERVIER-S22001351

PATIENT

DRUGS (8)
  1. PEGASPARGASE [Suspect]
     Active Substance: PEGASPARGASE
     Indication: Acute lymphocytic leukaemia
     Dosage: 760 IU, D4
     Route: 042
     Dates: start: 20211223, end: 20211223
  2. VINCRISTINE [Suspect]
     Active Substance: VINCRISTINE
     Indication: Acute lymphocytic leukaemia
     Dosage: 0.9 MG, D1, D8, D15
     Route: 042
     Dates: start: 20211220, end: 20220103
  3. DOXORUBICIN [Suspect]
     Active Substance: DOXORUBICIN
     Indication: Acute lymphocytic leukaemia
     Dosage: 15.2 MG, D1, D8, D15
     Route: 042
     Dates: start: 20211220, end: 20220103
  4. DEXAMETHASONE [Suspect]
     Active Substance: DEXAMETHASONE
     Indication: Acute lymphocytic leukaemia
     Dosage: 6 MG, D1 TO D21
     Route: 048
     Dates: start: 20211220, end: 20220109
  5. METHOTREXATE [Suspect]
     Active Substance: METHOTREXATE
     Indication: Acute lymphocytic leukaemia
     Dosage: 10 MG, D4, D31
     Route: 037
     Dates: start: 20211223, end: 20220119
  6. CYCLOPHOSPHAMIDE [Suspect]
     Active Substance: CYCLOPHOSPHAMIDE
     Indication: Acute lymphocytic leukaemia
     Dosage: 610 MG, D29
     Route: 042
     Dates: start: 20220117
  7. THIOGUANINE [Suspect]
     Active Substance: THIOGUANINE
     Indication: Acute lymphocytic leukaemia
     Dosage: 36 MG, D29 TO D42
     Route: 048
     Dates: start: 20220117, end: 20220130
  8. CYTARABINE [Suspect]
     Active Substance: CYTARABINE
     Indication: Acute lymphocytic leukaemia
     Dosage: 46 MG, D31 TO D34, D38 TO D4UNREADABLE DATE
     Route: 042
     Dates: start: 20220119, end: 20220129

REACTIONS (4)
  - Coronavirus infection [Recovered/Resolved]
  - Adenovirus infection [Recovered/Resolved]
  - Febrile bone marrow aplasia [Recovered/Resolved]
  - Pneumonia bacterial [Recovered/Resolved]

NARRATIVE: CASE EVENT DATE: 20220109
